FAERS Safety Report 9703203 (Version 1)
Quarter: 2013Q4

REPORT INFORMATION
  Report Type: Spontaneous
  Country: US (occurrence: US)
  Receive Date: 20131122
  Receipt Date: 20131122
  Transmission Date: 20140711
  Serious: No
  Sender: FDA-Public Use
  Company Number: US-BIOGENIDEC-2013BI111935

PATIENT
  Sex: Female

DRUGS (3)
  1. TYSABRI [Suspect]
     Indication: MULTIPLE SCLEROSIS
     Route: 042
     Dates: start: 20071227, end: 20101230
  2. TECFIDERA [Concomitant]
     Indication: MULTIPLE SCLEROSIS
  3. COPAXONE [Concomitant]

REACTIONS (1)
  - Adverse drug reaction [Unknown]
